FAERS Safety Report 23848892 (Version 1)
Quarter: 2024Q2

REPORT INFORMATION
  Report Type: Spontaneous
  Country: NL (occurrence: NL)
  Receive Date: 20240513
  Receipt Date: 20240513
  Transmission Date: 20240716
  Serious: Yes (Other)
  Sender: FDA-Public Use
  Company Number: None

PATIENT
  Age: 77 Year
  Sex: Female
  Weight: 67 kg

DRUGS (4)
  1. REPATHA [Suspect]
     Active Substance: EVOLOCUMAB
     Indication: Product used for unknown indication
     Dosage: 1 DOSAGE FORM, Q2WK
     Route: 065
     Dates: start: 20240125, end: 20240401
  2. ASPIRIN [Concomitant]
     Active Substance: ASPIRIN
     Dosage: UNK (80 MG TABLET)
     Route: 065
  3. COLECALCIFEROL ARISTO [Concomitant]
     Dosage: UNK (2X PER WEEK 1000MCG)
     Route: 065
  4. FERROUS FUMARATE [Concomitant]
     Active Substance: FERROUS FUMARATE
     Dosage: UNK (3X PER WEEK 100 MG TABLET)
     Route: 065

REACTIONS (11)
  - Neuropathy peripheral [Recovering/Resolving]
  - Cough [Recovering/Resolving]
  - Rhinorrhoea [Recovering/Resolving]
  - Gait disturbance [Recovering/Resolving]
  - Muscle spasms [Recovering/Resolving]
  - Dehydration [Recovering/Resolving]
  - Myalgia [Recovering/Resolving]
  - Headache [Recovering/Resolving]
  - Musculoskeletal stiffness [Recovering/Resolving]
  - Adverse reaction [Recovering/Resolving]
  - Disturbance in attention [Recovering/Resolving]
